FAERS Safety Report 7292680-0 (Version None)
Quarter: 2011Q1

REPORT INFORMATION
  Report Type: 
  Country: None (occurrence: None)
  Receive Date: 20110215
  Receipt Date: 20110201
  Transmission Date: 20110831
  Serious: Yes (Hospitalization)
  Sender: FDA-Public Use
  Company Number: PHHY2011AU02974

PATIENT
  Sex: Female

DRUGS (3)
  1. CLOZARIL [Suspect]
     Dosage: 500 MG
     Route: 048
     Dates: start: 19940422
  2. CLOMIPRAMINE HCL [Concomitant]
     Indication: OBSESSIVE THOUGHTS
     Dosage: 75 MG
  3. CLOZARIL [Suspect]
     Dosage: UNK
     Route: 048

REACTIONS (2)
  - MALAISE [None]
  - PSYCHOTIC DISORDER [None]
